FAERS Safety Report 16738470 (Version 3)
Quarter: 2019Q3

REPORT INFORMATION
  Report Type: Spontaneous
  Country: US (occurrence: US)
  Receive Date: 20190826
  Receipt Date: 20190908
  Transmission Date: 20191005
  Serious: Yes (Disabling)
  Sender: FDA-Public Use
  Company Number: US-AMGEN-USASP2019133381

PATIENT
  Age: 59 Year
  Sex: Female
  Weight: 68.93 kg

DRUGS (3)
  1. PROLIA [Suspect]
     Active Substance: DENOSUMAB
     Indication: COMPRESSION FRACTURE
  2. PROLIA [Suspect]
     Active Substance: DENOSUMAB
     Indication: PROPHYLAXIS
     Dosage: UNK
     Route: 065
     Dates: start: 201805, end: 20190606
  3. PROLIA [Suspect]
     Active Substance: DENOSUMAB
     Indication: OSTEOPENIA

REACTIONS (2)
  - Off label use [Unknown]
  - Piriformis syndrome [Not Recovered/Not Resolved]

NARRATIVE: CASE EVENT DATE: 201805
